FAERS Safety Report 7009310-5 (Version None)
Quarter: 2010Q3

REPORT INFORMATION
  Report Type: 
  Country: None (occurrence: None)
  Receive Date: 20100923
  Receipt Date: 20100910
  Transmission Date: 20110219
  Serious: Yes (Death)
  Sender: FDA-Public Use
  Company Number: SE-ELI_LILLY_AND_COMPANY-SE201009002434

PATIENT
  Sex: Male

DRUGS (2)
  1. ZYPREXA [Suspect]
     Indication: BIPOLAR DISORDER
     Dosage: 10-30 MG, UNKNOWN
  2. ZYPREXA [Suspect]
     Dosage: 30 MG, UNK

REACTIONS (5)
  - BLOOD CREATINE PHOSPHOKINASE [None]
  - CARDIAC FAILURE [None]
  - MYOCARDIAL INFARCTION [None]
  - OVERDOSE [None]
  - PYREXIA [None]
